FAERS Safety Report 16168567 (Version 1)
Quarter: 2019Q2

REPORT INFORMATION
  Report Type: Spontaneous
  Country: US (occurrence: US)
  Receive Date: 20190408
  Receipt Date: 20190408
  Transmission Date: 20190711
  Serious: Yes (Other)
  Sender: FDA-Public Use
  Company Number: US-BAYER-2019-064542

PATIENT
  Age: 69 Year
  Sex: Female
  Weight: 73.92 kg

DRUGS (1)
  1. BAYER LOW DOSE [Suspect]
     Active Substance: ASPIRIN
     Indication: CHEST PAIN
     Dosage: 1 DF, QD
     Route: 048
     Dates: start: 2016

REACTIONS (1)
  - Gastric infection [Not Recovered/Not Resolved]

NARRATIVE: CASE EVENT DATE: 20190327
